FAERS Safety Report 6010101-2 (Version None)
Quarter: 2008Q4

REPORT INFORMATION
  Report Type: 
  Country: None (occurrence: None)
  Receive Date: 20081218
  Receipt Date: 20081211
  Transmission Date: 20090506
  Serious: Yes (Death)
  Sender: FDA-Public Use
  Company Number: US-CELGENEUS-163-21880-08110833

PATIENT
  Sex: Male

DRUGS (2)
  1. REVLIMID [Suspect]
     Route: 048
     Dates: start: 20080915
  2. REVLIMID [Suspect]
     Route: 048
     Dates: start: 20080826, end: 20080901

REACTIONS (1)
  - CHRONIC LYMPHOCYTIC LEUKAEMIA [None]
